FAERS Safety Report 5563028-4 (Version None)
Quarter: 2007Q4

REPORT INFORMATION
  Report Type: 
  Country: None (occurrence: None)
  Receive Date: 20071217
  Receipt Date: 20071204
  Transmission Date: 20080405
  Serious: Yes (Other)
  Sender: FDA-Public Use
  Company Number: DE-ROCHE-536797

PATIENT

DRUGS (8)
  1. CELLCEPT [Suspect]
     Dosage: UP TO A MAXIMUM DOSE OF 2000MG/DAY
     Route: 065
  2. CSA [Concomitant]
     Dosage: TAPERED PROGRESSIVELY TO A TARGET TROUGH OF 60 +/- 10MG/DAY
  3. IMUREK [Concomitant]
  4. STEROID NOS [Concomitant]
  5. ATGAM [Concomitant]
  6. ZENAPAX [Concomitant]
  7. INTRON A [Concomitant]
     Route: 058
  8. REBETOL [Concomitant]
     Route: 048

REACTIONS (1)
  - HEPATIC FIBROSIS [None]
